FAERS Safety Report 18438853 (Version 2)
Quarter: 2020Q4

REPORT INFORMATION
  Report Type: Spontaneous
  Country: FR (occurrence: FR)
  Receive Date: 20201028
  Receipt Date: 20201110
  Transmission Date: 20210114
  Serious: Yes (Other)
  Sender: FDA-Public Use
  Company Number: FR-009507513-2010FRA008451

PATIENT
  Sex: Female
  Weight: 66 kg

DRUGS (3)
  1. CO-RENITEC [Suspect]
     Active Substance: ENALAPRIL\HYDROCHLOROTHIAZIDE
     Indication: HYPERTENSION
     Dosage: 1 DOSAGE FORM, QD
  2. JANUMET [Suspect]
     Active Substance: METFORMIN HYDROCHLORIDE\SITAGLIPTIN PHOSPHATE
     Indication: DIABETES MELLITUS
     Dosage: 1 DOSAGE FORM, QD
  3. JANUMET [Suspect]
     Active Substance: METFORMIN HYDROCHLORIDE\SITAGLIPTIN PHOSPHATE
     Dosage: 1 DOSAGE FORM, BID

REACTIONS (5)
  - Oral pain [Unknown]
  - Diabetes mellitus inadequate control [Unknown]
  - Cough [Unknown]
  - Dry mouth [Unknown]
  - Sleep-related eating disorder [Unknown]
